FAERS Safety Report 10470024 (Version 1)
Quarter: 2014Q3

REPORT INFORMATION
  Report Type: Spontaneous
  Country: US (occurrence: US)
  Receive Date: 20140923
  Receipt Date: 20140923
  Transmission Date: 20150326
  Serious: No
  Sender: FDA-Public Use
  Company Number: US-SHIONOGI, INC-2014000803

PATIENT
  Age: 47 Year
  Sex: Female

DRUGS (2)
  1. AZITHROMYCIN [Concomitant]
     Active Substance: AZITHROMYCIN ANHYDROUS
     Indication: SINUS HEADACHE
     Dosage: UNK
     Route: 065
  2. OSPHENA [Suspect]
     Active Substance: OSPEMIFENE
     Indication: DYSPAREUNIA
     Dosage: UNK
     Route: 065
     Dates: start: 20140812

REACTIONS (1)
  - Sinus headache [Recovered/Resolved]

NARRATIVE: CASE EVENT DATE: 201408
